FAERS Safety Report 20794350 (Version 1)
Quarter: 2022Q2

REPORT INFORMATION
  Report Type: Spontaneous
  Country: US (occurrence: US)
  Receive Date: 20220506
  Receipt Date: 20220506
  Transmission Date: 20220720
  Serious: Yes (Hospitalization)
  Sender: FDA-Public Use
  Company Number: US-UNITED THERAPEUTICS-UNT-2022-007557

PATIENT
  Age: 30 Year
  Sex: Female
  Weight: 58.957 kg

DRUGS (8)
  1. REMODULIN [Suspect]
     Active Substance: TREPROSTINIL
     Indication: Pulmonary arterial hypertension
     Dosage: UNK, CONTINUING
     Route: 058
     Dates: start: 20220225
  2. REMODULIN [Suspect]
     Active Substance: TREPROSTINIL
     Dosage: 0.099 ?G/KG, CONTINUING
     Route: 058
  3. REMODULIN [Suspect]
     Active Substance: TREPROSTINIL
     Dosage: 0.113 ?G/KG, CONTINUING
     Route: 058
  4. REMODULIN [Suspect]
     Active Substance: TREPROSTINIL
     Indication: Pulmonary arterial hypertension
     Dosage: UNK, CONTINUING
     Route: 058
  5. REMODULIN [Suspect]
     Active Substance: TREPROSTINIL
     Dosage: 0.116 ?G/KG, CONTINUING
     Route: 058
  6. OPSUMIT [Concomitant]
     Active Substance: MACITENTAN
     Indication: Product used for unknown indication
     Route: 065
  7. ADEMPAS [Concomitant]
     Active Substance: RIOCIGUAT
     Indication: Product used for unknown indication
     Route: 065
  8. ELIQUIS [Concomitant]
     Active Substance: APIXABAN
     Indication: Product used for unknown indication
     Route: 065

REACTIONS (2)
  - Intracardiac pressure increased [Unknown]
  - Device malfunction [Unknown]

NARRATIVE: CASE EVENT DATE: 20220401
